FAERS Safety Report 6236426-3 (Version None)
Quarter: 2009Q2

REPORT INFORMATION
  Report Type: 
  Country: None (occurrence: None)
  Receive Date: 20090617
  Receipt Date: 20090608
  Transmission Date: 20091009
  Serious: Yes (Hospitalization, Other)
  Sender: FDA-Public Use
  Company Number: 2009US-24664

PATIENT
  Age: 50 Year
  Sex: Female

DRUGS (4)
  1. CETIRIZINE [Suspect]
     Indication: DRUG USE FOR UNKNOWN INDICATION
     Dosage: 10 MG, ORAL
     Route: 048
  2. MAC (MAC) [Concomitant]
  3. CIPROFLOXACIN [Concomitant]
  4. FLAGYL [Concomitant]

REACTIONS (3)
  - FOREIGN BODY TRAUMA [None]
  - OESOPHAGEAL PERFORATION [None]
  - WRONG TECHNIQUE IN DRUG USAGE PROCESS [None]
